FAERS Safety Report 8558559 (Version 3)
Quarter: 2014Q1

REPORT INFORMATION
  Report Type: Report from Study
  Country: MX (occurrence: MX)
  Receive Date: 20120511
  Receipt Date: 20140217
  Transmission Date: 20141002
  Serious: Yes (Death, Other)
  Sender: FDA-Public Use
  Company Number: PHHY2012MX039808

PATIENT
  Age: 83 Year
  Sex: Male

DRUGS (4)
  1. STALEVO [Suspect]
     Indication: PARKINSON^S DISEASE
     Dosage: 2 DF, DAILY (200/150/37.5 MG)
     Route: 048
     Dates: start: 201204
  2. LEVOTIROXINA [Concomitant]
     Indication: THYROID DISORDER
     Dosage: 1 DF, DAILY
     Dates: start: 20120404
  3. LIPITOR [Concomitant]
     Dosage: 10 MG, QHS
  4. MODURETIC [Concomitant]
     Dosage: 0.5 DF, EVERY THIRD DAY

REACTIONS (3)
  - Cardiopulmonary failure [Fatal]
  - Aphasia [Unknown]
  - Diet refusal [Unknown]
